FAERS Safety Report 4681653-X (Version None)
Quarter: 2005Q2

REPORT INFORMATION
  Report Type: 
  Country: None (occurrence: None)
  Receive Date: 20050602
  Receipt Date: 20050517
  Transmission Date: 20051028
  Serious: Yes (Other)
  Sender: FDA-Public Use
  Company Number: DSA_81331_2005

PATIENT
  Age: 48 Year
  Sex: Female
  Weight: 64.4108 kg

DRUGS (2)
  1. XYREM [Suspect]
     Indication: CATAPLEXY
     Dosage: 13.5 G NIGHTLY PO
     Route: 048
     Dates: start: 20030101, end: 20050516
  2. XYREM [Suspect]
     Indication: NARCOLEPSY
     Dosage: 13.5 G NIGHTLY PO
     Route: 048
     Dates: start: 20030101, end: 20050516

REACTIONS (7)
  - ADVERSE DRUG REACTION [None]
  - BLOOD PRESSURE INCREASED [None]
  - DYSPNOEA [None]
  - FLUID RETENTION [None]
  - PITTING OEDEMA [None]
  - PULMONARY EMBOLISM [None]
  - WEIGHT INCREASED [None]
